FAERS Safety Report 13109420 (Version 1)
Quarter: 2017Q1

REPORT INFORMATION
  Report Type: Report from Study
  Country: TW (occurrence: TW)
  Receive Date: 20170112
  Receipt Date: 20170112
  Transmission Date: 20170428
  Serious: Yes (Hospitalization, Other)
  Sender: FDA-Public Use
  Company Number: PHHY2016TW108010

PATIENT
  Age: 66 Year
  Sex: Male
  Weight: 75 kg

DRUGS (1)
  1. TASIGNA [Suspect]
     Active Substance: NILOTINIB
     Indication: CHRONIC MYELOID LEUKAEMIA
     Dosage: 600 MG, QD
     Route: 048
     Dates: start: 20150519, end: 20160628

REACTIONS (38)
  - Lumbar vertebral fracture [Recovered/Resolved]
  - Nephrolithiasis [Unknown]
  - Abdominal distension [Unknown]
  - Blood calcium decreased [Unknown]
  - Eosinophil count decreased [Unknown]
  - Abscess [Recovered/Resolved]
  - Spinal osteoarthritis [Unknown]
  - Haematocrit increased [Unknown]
  - White blood cell count increased [Unknown]
  - Weight bearing difficulty [Unknown]
  - Alanine aminotransferase increased [Unknown]
  - Blood sodium decreased [Unknown]
  - Red blood cell count decreased [Unknown]
  - Red cell distribution width increased [Unknown]
  - Spinal cord compression [Unknown]
  - Blood albumin decreased [Unknown]
  - Mean platelet volume decreased [Unknown]
  - Pathological fracture [Recovered/Resolved]
  - Metastasis [Recovered/Resolved]
  - Bone erosion [Unknown]
  - Pleural effusion [Unknown]
  - Abdominal pain [Unknown]
  - Haemoglobin decreased [Unknown]
  - Platelet count decreased [Unknown]
  - Pulmonary fibrosis [Unknown]
  - Splenomegaly [Unknown]
  - Lymphocyte count increased [Unknown]
  - Monocyte count increased [Unknown]
  - Urobilinogen urine increased [Unknown]
  - Back pain [Recovered/Resolved]
  - Metastases to bone [Unknown]
  - Flatulence [Unknown]
  - Prostatomegaly [Unknown]
  - Bone disorder [Unknown]
  - Basophil count abnormal [Unknown]
  - C-reactive protein increased [Unknown]
  - Depression [Unknown]
  - Blood pressure decreased [Unknown]

NARRATIVE: CASE EVENT DATE: 20160709
